FAERS Safety Report 6822134-4 (Version None)
Quarter: 2010Q3

REPORT INFORMATION
  Report Type: 
  Country: None (occurrence: None)
  Receive Date: 20100706
  Receipt Date: 20100706
  Transmission Date: 20110219
  Serious: Yes (Hospitalization)
  Sender: FDA-Public Use
  Company Number: None

PATIENT
  Sex: Male
  Weight: 97.3 kg

DRUGS (2)
  1. CISPLATIN [Suspect]
     Dosage: 55.8 MG
     Dates: end: 20100608
  2. TAXOL [Suspect]
     Dosage: 112 MG
     Dates: end: 20100608

REACTIONS (7)
  - ABDOMINAL PAIN [None]
  - ASTHENIA [None]
  - ATELECTASIS [None]
  - BODY TEMPERATURE INCREASED [None]
  - DIZZINESS [None]
  - HYPOTENSION [None]
  - HYPOVOLAEMIA [None]
